FAERS Safety Report 4766526-6 (Version None)
Quarter: 2005Q3

REPORT INFORMATION
  Report Type: 
  Country: None (occurrence: None)
  Receive Date: 20050909
  Receipt Date: 20050830
  Transmission Date: 20060218
  Serious: Yes (Hospitalization)
  Sender: FDA-Public Use
  Company Number: 2005JP001659

PATIENT
  Age: 64 Year
  Sex: Female
  Weight: 48 kg

DRUGS (10)
  1. FUNGUARD (MICAFUNGIN) INJECTION [Suspect]
     Indication: PYREXIA
     Dosage: SEE IMAGE
     Route: 041
     Dates: start: 20050207, end: 20050223
  2. FUNGUARD (MICAFUNGIN) INJECTION [Suspect]
     Indication: PYREXIA
     Dosage: SEE IMAGE
     Route: 041
     Dates: start: 20050311, end: 20050328
  3. FUNGUARD (MICAFUNGIN) INJECTION [Suspect]
     Indication: PYREXIA
     Dosage: SEE IMAGE
     Route: 041
     Dates: start: 20050422, end: 20050505
  4. FUNGUARD (MICAFUNGIN) INJECTION [Suspect]
     Indication: PYREXIA
     Dosage: SEE IMAGE
     Route: 041
     Dates: start: 20050607, end: 20050627
  5. MEROPEN (MEROPENEM) INJECTION [Concomitant]
  6. POLYMYXIN B (POLYMYXIN B) TABLET [Concomitant]
  7. TAKEPRON (LANSOPRAZOLE) CAPSULE [Concomitant]
  8. NORVASC /DEN/ (AMLODIPINE BESILATE) TABLET [Concomitant]
  9. DEPAS (ETIZOLAM) TABLET [Concomitant]
  10. KAMAG G (MAGNESIUM OXIDE) POWDER [Concomitant]

REACTIONS (3)
  - BONE MARROW DEPRESSION [None]
  - ENTEROCOLITIS [None]
  - RENAL DISORDER [None]
